FAERS Safety Report 11414834 (Version 2)
Quarter: 2015Q4

REPORT INFORMATION
  Report Type: Report from Study
  Country: US (occurrence: US)
  Receive Date: 20150825
  Receipt Date: 20151104
  Transmission Date: 20160304
  Serious: No
  Sender: FDA-Public Use
  Company Number: PHEH2015US008472

PATIENT
  Sex: Male

DRUGS (1)
  1. GILENYA [Suspect]
     Active Substance: FINGOLIMOD HYDROCHLORIDE
     Indication: MULTIPLE SCLEROSIS
     Dosage: 0.5 MG, QD
     Route: 048
     Dates: start: 20150422

REACTIONS (7)
  - Headache [Unknown]
  - Cough [Unknown]
  - Flushing [Unknown]
  - Paranasal sinus discomfort [Unknown]
  - Aphasia [Unknown]
  - Memory impairment [Not Recovered/Not Resolved]
  - Oropharyngeal pain [Unknown]
